FAERS Safety Report 8554172-8 (Version None)
Quarter: 2012Q3

REPORT INFORMATION
  Report Type: 
  Country: None (occurrence: None)
  Receive Date: 20120731
  Receipt Date: 20120719
  Transmission Date: 20120928
  Serious: Yes (Other)
  Sender: FDA-Public Use
  Company Number: US-009507513-1207USA008513

PATIENT

DRUGS (12)
  1. ISENTRESS [Concomitant]
     Dosage: 400 MG, UNK
  2. RIBAVIRIN [Concomitant]
     Dosage: 600 MG, QD
  3. TRUVADA [Concomitant]
  4. METFORMIN HYDROCHLORIDE [Concomitant]
     Dosage: 50 MG, UNK
  5. ACTOS [Concomitant]
     Dosage: 30 MG, UNK
  6. VICTRELIS [Suspect]
     Indication: HEPATITIS C
     Dosage: 800 MG, TID
     Route: 048
  7. JANUVIA [Concomitant]
     Dosage: 25 MG, UNK
  8. CENTRUM (MINERALS (UNSPECIFIED) (+) VITAMINS (UNSPECIFIED)) [Concomitant]
     Dosage: 81 MG, UNK
  9. TAMSULOSIN HYDROCHLORIDE [Concomitant]
     Dosage: 0.4 MG, UNK
  10. LISINOPRIL [Concomitant]
     Dosage: 10 MG, UNK
  11. ATENOLOL [Concomitant]
     Dosage: 25 MG, UNK
  12. PEGASYS [Concomitant]
     Dosage: 180 MICROGRAM, QM

REACTIONS (4)
  - CHEST PAIN [None]
  - CONVULSION [None]
  - PAIN IN JAW [None]
  - FOAMING AT MOUTH [None]
